FAERS Safety Report 7280412-1 (Version None)
Quarter: 2011Q1

REPORT INFORMATION
  Report Type: 
  Country: None (occurrence: None)
  Receive Date: 20110208
  Receipt Date: 20110202
  Transmission Date: 20110831
  Serious: Yes (Other)
  Sender: FDA-Public Use
  Company Number: US-PFIZER INC-2011024765

PATIENT
  Sex: Female

DRUGS (1)
  1. DEPO-PROVERA [Suspect]

REACTIONS (7)
  - ANXIETY [None]
  - DYSPNOEA [None]
  - PARAESTHESIA [None]
  - DIZZINESS [None]
  - HEADACHE [None]
  - MOOD ALTERED [None]
  - INSOMNIA [None]
